FAERS Safety Report 5854220-X (Version None)
Quarter: 2008Q3

REPORT INFORMATION
  Report Type: 
  Country: None (occurrence: None)
  Receive Date: 20080822
  Receipt Date: 20080818
  Transmission Date: 20090109
  Serious: Yes (Other)
  Sender: FDA-Public Use
  Company Number: PHHY2008BR18627

PATIENT
  Age: 17 Year
  Sex: Female
  Weight: 70 kg

DRUGS (1)
  1. METHERGINE [Suspect]
     Indication: ABORTION INDUCED
     Dosage: 0.125 MG

REACTIONS (2)
  - ABDOMINAL PAIN [None]
  - INTENTIONAL DRUG MISUSE [None]
